FAERS Safety Report 20047695 (Version 1)
Quarter: 2021Q4

REPORT INFORMATION
  Report Type: Spontaneous
  Country: US (occurrence: US)
  Receive Date: 20211109
  Receipt Date: 20211109
  Transmission Date: 20220303
  Serious: Yes (Other)
  Sender: FDA-Public Use
  Company Number: US-GLAXOSMITHKLINE-US2021GSK229816

PATIENT
  Sex: Female

DRUGS (8)
  1. ZANTAC [Suspect]
     Active Substance: RANITIDINE HYDROCHLORIDE
     Indication: Peptic ulcer
     Dosage: UNK, QD
     Route: 065
     Dates: start: 199001, end: 200709
  2. ZANTAC [Suspect]
     Active Substance: RANITIDINE HYDROCHLORIDE
     Indication: Prophylaxis
  3. ZANTAC [Suspect]
     Active Substance: RANITIDINE HYDROCHLORIDE
     Indication: Peptic ulcer
     Dosage: UNK, QD
     Route: 065
     Dates: start: 199001, end: 200709
  4. ZANTAC [Suspect]
     Active Substance: RANITIDINE HYDROCHLORIDE
     Indication: Prophylaxis
  5. RANITIDINE [Suspect]
     Active Substance: RANITIDINE
     Indication: Peptic ulcer
     Dosage: UNK, QD
     Route: 065
     Dates: start: 199001, end: 200709
  6. RANITIDINE [Suspect]
     Active Substance: RANITIDINE
     Indication: Prophylaxis
  7. RANITIDINE [Suspect]
     Active Substance: RANITIDINE
     Indication: Peptic ulcer
     Dosage: UNK, QD
     Route: 065
     Dates: start: 199001, end: 200709
  8. RANITIDINE [Suspect]
     Active Substance: RANITIDINE
     Indication: Prophylaxis

REACTIONS (1)
  - Breast cancer [Unknown]
